FAERS Safety Report 4756135-7 (Version None)
Quarter: 2005Q3

REPORT INFORMATION
  Report Type: 
  Country: None (occurrence: None)
  Receive Date: 20050826
  Receipt Date: 20041220
  Transmission Date: 20060218
  Serious: Yes (Other)
  Sender: FDA-Public Use
  Company Number: USA-2004-0018089

PATIENT
  Age: 35 Year
  Sex: Female
  Weight: 77.1 kg

DRUGS (5)
  1. OXYCONTIN [Suspect]
     Indication: PAIN
     Dosage: 20 MG, Q12H
  2. OXYCODONE HCL [Suspect]
     Indication: PAIN
  3. LAMICTAL [Concomitant]
  4. PROZAC [Concomitant]
  5. SYNTHROID [Concomitant]

REACTIONS (7)
  - AGITATION [None]
  - ANXIETY [None]
  - DRUG DEPENDENCE [None]
  - DRUG INEFFECTIVE [None]
  - MEDICATION ERROR [None]
  - PAIN [None]
  - SEDATION [None]
